FAERS Safety Report 9868832 (Version 1)
Quarter: 2014Q1

REPORT INFORMATION
  Report Type: Spontaneous
  Country: US (occurrence: US)
  Receive Date: 20140204
  Receipt Date: 20140204
  Transmission Date: 20141002
  Serious: No
  Sender: FDA-Public Use
  Company Number: US-GILEAD-2014-0093699

PATIENT
  Sex: Female

DRUGS (3)
  1. LETAIRIS [Suspect]
     Indication: PRODUCT USED FOR UNKNOWN INDICATION
     Dosage: 10 MG, QD
     Route: 048
     Dates: start: 20140131
  2. LETAIRIS [Suspect]
     Dosage: 5 MG, QD
     Dates: start: 20140107
  3. REMODULIN [Concomitant]

REACTIONS (1)
  - Diarrhoea [Unknown]
